FAERS Safety Report 24546184 (Version 1)
Quarter: 2024Q4

REPORT INFORMATION
  Report Type: Spontaneous
  Country: US (occurrence: US)
  Receive Date: 20241024
  Receipt Date: 20241024
  Transmission Date: 20250115
  Serious: Yes (Other)
  Sender: SANDOZ
  Company Number: US-MLMSERVICE-20230207-4091617-1

PATIENT
  Age: 34 Year
  Sex: Female

DRUGS (8)
  1. BELIMUMAB [Suspect]
     Active Substance: BELIMUMAB
     Indication: Systemic lupus erythematosus
     Dosage: 200.000MG
     Route: 058
  2. BELIMUMAB [Suspect]
     Active Substance: BELIMUMAB
     Indication: Chronic cutaneous lupus erythematosus
  3. HYDROXYCHLOROQUINE [Suspect]
     Active Substance: HYDROXYCHLOROQUINE
     Indication: Systemic lupus erythematosus
     Dosage: 300 MG, QD
     Route: 065
  4. HYDROXYCHLOROQUINE [Suspect]
     Active Substance: HYDROXYCHLOROQUINE
     Indication: Chronic cutaneous lupus erythematosus
  5. MYCOPHENOLATE MOFETIL [Suspect]
     Active Substance: MYCOPHENOLATE MOFETIL
     Indication: Systemic lupus erythematosus
     Dosage: 1000 MG, BID
     Route: 065
  6. MYCOPHENOLATE MOFETIL [Suspect]
     Active Substance: MYCOPHENOLATE MOFETIL
     Indication: Chronic cutaneous lupus erythematosus
  7. PREDNISONE [Suspect]
     Active Substance: PREDNISONE
     Indication: Chronic cutaneous lupus erythematosus
     Dosage: 10 MG, QD
     Route: 048
  8. PREDNISONE [Suspect]
     Active Substance: PREDNISONE
     Indication: Systemic lupus erythematosus
     Dosage: 20 MG, QD
     Route: 048

REACTIONS (1)
  - Cutaneous lupus erythematosus [Recovering/Resolving]
